FAERS Safety Report 9652899 (Version 3)
Quarter: 2014Q1

REPORT INFORMATION
  Report Type: Report from Study
  Country: US (occurrence: US)
  Receive Date: 20131029
  Receipt Date: 20140211
  Transmission Date: 20141002
  Serious: Yes (Hospitalization, Other)
  Sender: FDA-Public Use
  Company Number: US-ABBVIE-13P-163-1135327-00

PATIENT
  Age: 67 Year
  Sex: Female
  Weight: 70.37 kg

DRUGS (11)
  1. HUMIRA [Suspect]
     Indication: CROHN^S DISEASE
     Route: 058
     Dates: start: 20130719
  2. HUMIRA [Suspect]
     Dates: start: 20131119
  3. PANTOPRAZOLE [Concomitant]
     Indication: GASTROOESOPHAGEAL REFLUX DISEASE
     Dosage: DAILY
     Route: 048
  4. ZOLPIDEM [Concomitant]
     Indication: INSOMNIA
     Dosage: 0.5 TAB QHS
     Route: 048
  5. VITAMIN D [Concomitant]
     Indication: VITAMIN D DEFICIENCY
     Dosage: DAILY
     Route: 048
  6. VITAMIN B12 [Concomitant]
     Indication: VITAMIN B COMPLEX DEFICIENCY
     Route: 048
  7. PROBIOTICS [Concomitant]
     Indication: PRODUCT USED FOR UNKNOWN INDICATION
     Dosage: DAILY
     Route: 048
  8. ATENOLOL CHLORTHALIDONE [Concomitant]
     Indication: HYPERTENSION
     Dosage: 50/25 MG
  9. LISINOPRIL [Concomitant]
     Indication: HYPERTENSION
  10. PAIN PILLS [Concomitant]
     Indication: PAIN
  11. IMODIUM [Concomitant]
     Indication: CROHN^S DISEASE
     Dosage: DAILY

REACTIONS (8)
  - Cardiac disorder [Recovering/Resolving]
  - Chest pain [Recovering/Resolving]
  - Hyperhidrosis [Recovering/Resolving]
  - Heart injury [Recovering/Resolving]
  - Pericardial effusion [Recovering/Resolving]
  - Muscle spasms [Unknown]
  - Heart rate decreased [Unknown]
  - Incision site infection [Unknown]
